FAERS Safety Report 15500412 (Version 1)
Quarter: 2018Q4

REPORT INFORMATION
  Report Type: Spontaneous
  Country: US (occurrence: US)
  Receive Date: 20181015
  Receipt Date: 20181015
  Transmission Date: 20190205
  Serious: No
  Sender: FDA-Public Use
  Company Number: US-DSJP-DSU-2018-127480

PATIENT
  Sex: Male

DRUGS (2)
  1. MORPHABOND ER [Suspect]
     Active Substance: MORPHINE SULFATE
     Dosage: 30 MG, UNK
     Route: 065
     Dates: start: 2018
  2. MORPHABOND ER [Suspect]
     Active Substance: MORPHINE SULFATE
     Indication: PRODUCT USED FOR UNKNOWN INDICATION
     Dosage: 60 MG, UNK
     Route: 065
     Dates: end: 2018

REACTIONS (3)
  - Product residue present [Unknown]
  - Sedation complication [Unknown]
  - Vomiting [Unknown]

NARRATIVE: CASE EVENT DATE: 2018
